FAERS Safety Report 11137474 (Version 2)
Quarter: 2015Q3

REPORT INFORMATION
  Report Type: Spontaneous
  Country: NL (occurrence: NL)
  Receive Date: 20150526
  Receipt Date: 20150708
  Transmission Date: 20151125
  Serious: Yes (Other)
  Sender: FDA-Public Use
  Company Number: NL-APOTEX-2015AP009308

PATIENT
  Age: 16 Year
  Sex: Female

DRUGS (4)
  1. SERTRALINE APOTEX [Suspect]
     Active Substance: SERTRALINE HYDROCHLORIDE
     Indication: DEPRESSION
     Dosage: 25 MG, UNK
     Route: 065
  2. RISPERIDONE. [Suspect]
     Active Substance: RISPERIDONE
     Indication: DEPRESSION
     Dosage: 1 MG, UNK
     Route: 065
  3. SERTRALINE APOTEX [Suspect]
     Active Substance: SERTRALINE HYDROCHLORIDE
     Dosage: 100 MG, QD
     Route: 065
  4. SERTRALINE APOTEX [Suspect]
     Active Substance: SERTRALINE HYDROCHLORIDE
     Dosage: 150 UNK, UNK
     Route: 065

REACTIONS (4)
  - Intentional self-injury [Unknown]
  - Abnormal behaviour [Unknown]
  - Product use issue [Recovered/Resolved]
  - Condition aggravated [Recovered/Resolved]
